FAERS Safety Report 21054126 (Version 1)
Quarter: 2022Q3

REPORT INFORMATION
  Report Type: Report from Study
  Country: NL (occurrence: NL)
  Receive Date: 20220707
  Receipt Date: 20220707
  Transmission Date: 20221027
  Serious: Yes (Hospitalization, Other)
  Sender: FDA-Public Use
  Company Number: NL-AMGEN-NLDSL2019092406

PATIENT
  Age: 69 Year
  Sex: Male

DRUGS (12)
  1. XGEVA [Suspect]
     Active Substance: DENOSUMAB
     Indication: Prophylaxis
     Dosage: 120 MILLIGRAM (120MG/1.7ML), Q4WK
     Route: 058
     Dates: start: 201807
  2. XGEVA [Suspect]
     Active Substance: DENOSUMAB
     Dosage: 120 MILLIGRAM (120MG/1.7ML), Q4WK
     Route: 058
     Dates: start: 20190410
  3. CALCIUM CARBONATE\CHOLECALCIFEROL [Concomitant]
     Active Substance: CALCIUM CARBONATE\CHOLECALCIFEROL
     Dosage: 500 MILLIGRAM, QD (1.25G/800IE, 1D1T)
  4. GOSERELIN [Concomitant]
     Active Substance: GOSERELIN
     Dosage: 10.8 MILLIGRAM, Q3MO
  5. GOSERELIN [Concomitant]
     Active Substance: GOSERELIN
     Dosage: 10.8 MILLIGRAM, 1MD1IJ
  6. POLYETHYLENE GLYCOLS [Concomitant]
     Active Substance: POLYETHYLENE GLYCOLS
     Dosage: UNK UNK, QD (1D1S)
  7. PREDNISOLONE [Concomitant]
     Active Substance: PREDNISOLONE
     Dosage: 5 MILLIGRAM, BID (2D1T)
  8. SOLADEX [Concomitant]
     Dosage: UNK
  9. TAMSULOSIN [Concomitant]
     Active Substance: TAMSULOSIN
     Dosage: 0.4 MILLIGRAM, QD
  10. METOCLOPRAMIDE [Concomitant]
     Active Substance: METOCLOPRAMIDE
     Dosage: 10 MILLIGRAM, 1-3D1T
  11. RADIUM [Concomitant]
     Active Substance: RADIUM
     Indication: Product used for unknown indication
     Route: 065
  12. ZOLADEX [Concomitant]
     Active Substance: GOSERELIN ACETATE

REACTIONS (7)
  - Prostate cancer metastatic [Unknown]
  - Haemoglobin decreased [Not Recovered/Not Resolved]
  - Coronavirus infection [Not Recovered/Not Resolved]
  - Prostatic specific antigen increased [Unknown]
  - Weight decreased [Not Recovered/Not Resolved]
  - Pallor [Not Recovered/Not Resolved]
  - Cough [Not Recovered/Not Resolved]

NARRATIVE: CASE EVENT DATE: 20180101
